FAERS Safety Report 9010449 (Version 3)
Quarter: 2013Q1

REPORT INFORMATION
  Report Type: Report from Study
  Country: DE (occurrence: DE)
  Receive Date: 20130109
  Receipt Date: 20130314
  Transmission Date: 20140127
  Serious: Yes (Other)
  Sender: FDA-Public Use
  Company Number: DE-ROCHE-1177310

PATIENT
  Age: 83 Year
  Sex: Male
  Weight: 97 kg

DRUGS (3)
  1. RITUXIMAB [Suspect]
     Indication: B-CELL LYMPHOMA
     Route: 065
     Dates: start: 20110607, end: 20111228
  2. RITUXIMAB [Suspect]
     Route: 065
     Dates: start: 20120228, end: 20121113
  3. BENDAMUSTINE [Concomitant]
     Route: 065
     Dates: start: 20110607

REACTIONS (3)
  - Haematoma [Unknown]
  - Non-Hodgkin^s lymphoma [Unknown]
  - Neoplasm malignant [Unknown]
